FAERS Safety Report 4311494-4 (Version None)
Quarter: 2004Q1

REPORT INFORMATION
  Report Type: 
  Country: None (occurrence: None)
  Receive Date: 20040303
  Receipt Date: 20040303
  Transmission Date: 20041129
  Serious: Yes (Hospitalization)
  Sender: FDA-Public Use
  Company Number: None

PATIENT
  Age: 56 Year
  Sex: Male

DRUGS (1)
  1. PRAVASTATIN 20MG [Suspect]
     Indication: DYSLIPIDAEMIA
     Dosage: 60MG QHS ORAL
     Route: 048
     Dates: start: 20031110, end: 20031201

REACTIONS (2)
  - STOMACH DISCOMFORT [None]
  - VOMITING [None]
